FAERS Safety Report 4402220-9 (Version None)
Quarter: 2004Q3

REPORT INFORMATION
  Report Type: 
  Country: None (occurrence: None)
  Receive Date: 20040720
  Receipt Date: 20031210
  Transmission Date: 20050211
  Serious: Yes (Disabling)
  Sender: FDA-Public Use
  Company Number: IL-ROCHE-353752

PATIENT
  Age: 59 Year
  Sex: Male
  Weight: 89 kg

DRUGS (5)
  1. CAPECITABINE [Suspect]
     Dosage: TWO WEEK TREATMENT AND ONE WEEK REST.
     Route: 048
     Dates: start: 20030824, end: 20031116
  2. OXALIPLATIN [Suspect]
     Route: 042
     Dates: start: 20030824, end: 20031102
  3. LITHIUM [Concomitant]
     Dates: start: 19830615
  4. PERPHENAN [Concomitant]
     Dates: start: 19830615, end: 20031120
  5. GILEX [Concomitant]
     Dates: start: 19830615

REACTIONS (1)
  - PSYCHOTIC DISORDER [None]
